FAERS Safety Report 19599119 (Version 1)
Quarter: 2021Q3

REPORT INFORMATION
  Report Type: Spontaneous
  Country: US (occurrence: US)
  Receive Date: 20210722
  Receipt Date: 20210722
  Transmission Date: 20211014
  Serious: No
  Sender: FDA-Public Use
  Company Number: US-PFIZER INC-2021888770

PATIENT
  Age: 69 Year
  Sex: Female

DRUGS (2)
  1. LYRICA [Suspect]
     Active Substance: PREGABALIN
     Dosage: UNK
  2. COVID?19 VACCINE [Concomitant]
     Dosage: UNK

REACTIONS (5)
  - Cardiac disorder [Unknown]
  - Agitation [Unknown]
  - Memory impairment [Unknown]
  - Fibromyalgia [Unknown]
  - Blood sodium abnormal [Unknown]
